FAERS Safety Report 4590471-2 (Version None)
Quarter: 2005Q1

REPORT INFORMATION
  Report Type: 
  Country: None (occurrence: None)
  Receive Date: 20050224
  Receipt Date: 20050216
  Transmission Date: 20050727
  Serious: Yes (Life-Threatening)
  Sender: FDA-Public Use
  Company Number: JP-BRISTOL-MYERS SQUIBB COMPANY-12868014

PATIENT
  Age: 73 Year
  Sex: Male

DRUGS (8)
  1. TAXOL [Suspect]
     Indication: LUNG NEOPLASM MALIGNANT
     Route: 042
     Dates: start: 20040722, end: 20040730
  2. PARAPLATIN [Suspect]
     Indication: LUNG NEOPLASM MALIGNANT
     Route: 042
     Dates: start: 20040722, end: 20040722
  3. MEVALOTIN [Concomitant]
     Route: 048
     Dates: start: 20040712
  4. NOVAMIN [Concomitant]
     Route: 048
     Dates: start: 20040723
  5. ASTOMIN [Concomitant]
     Dates: start: 20040714
  6. OXYCONTIN [Concomitant]
     Route: 048
     Dates: start: 20040722
  7. ITOROL [Concomitant]
     Route: 048
     Dates: start: 20040712, end: 20040806
  8. FRANDOL [Concomitant]
     Route: 062
     Dates: start: 20040712, end: 20040806

REACTIONS (1)
  - ACUTE CORONARY SYNDROME [None]
